FAERS Safety Report 6775631-4 (Version None)
Quarter: 2010Q2

REPORT INFORMATION
  Report Type: 
  Country: None (occurrence: None)
  Receive Date: 20100617
  Receipt Date: 20100609
  Transmission Date: 20101027
  Serious: Yes (Hospitalization)
  Sender: FDA-Public Use
  Company Number: US-AMGEN-US344653

PATIENT
  Sex: Female

DRUGS (10)
  1. PANITUMUMAB [Suspect]
     Indication: SQUAMOUS CELL CARCINOMA
     Route: 042
     Dates: start: 20090226, end: 20090415
  2. DURAGESIC-100 [Concomitant]
     Route: 062
     Dates: start: 20081008
  3. GABAPENTIN [Concomitant]
     Route: 048
     Dates: start: 20081002
  4. DILAUDID [Concomitant]
     Route: 048
     Dates: start: 20080924
  5. AMBIEN [Concomitant]
     Route: 048
     Dates: start: 20080924
  6. PREDNISONE [Concomitant]
     Route: 048
     Dates: start: 20081022
  7. BACTRIM [Concomitant]
     Route: 048
     Dates: start: 20081022
  8. FLAGYL [Concomitant]
     Route: 048
     Dates: start: 20081001
  9. CLONAZEPAM [Concomitant]
     Route: 048
     Dates: start: 20081001
  10. SYNTHROID [Concomitant]
     Route: 048
     Dates: start: 20080402

REACTIONS (2)
  - GASTROINTESTINAL HAEMORRHAGE [None]
  - PHARYNGEAL HAEMORRHAGE [None]
